FAERS Safety Report 21513189 (Version 1)
Quarter: 2022Q4

REPORT INFORMATION
  Report Type: Spontaneous
  Country: US (occurrence: None)
  Receive Date: 20221026
  Receipt Date: 20221026
  Transmission Date: 20230113
  Serious: Yes (Other)
  Sender: FDA-Public Use
  Company Number: None

PATIENT
  Age: 75 Year
  Sex: Female
  Weight: 67.1 kg

DRUGS (16)
  1. PROLIA [Suspect]
     Active Substance: DENOSUMAB
     Indication: Osteoporosis
     Dosage: OTHER FREQUENCY : EVERY 6 MONTHS;?
     Route: 058
     Dates: start: 20211005, end: 20220420
  2. GABAPENTIN [Concomitant]
     Active Substance: GABAPENTIN
  3. ACYCLOVIR [Concomitant]
     Active Substance: ACYCLOVIR
  4. ALPRAZOLAM [Concomitant]
     Active Substance: ALPRAZOLAM
  5. AMIODARONE [Concomitant]
     Active Substance: AMIODARONE
  6. BACLOFEN [Concomitant]
     Active Substance: BACLOFEN
  7. AZITHROMYCIN [Concomitant]
     Active Substance: AZITHROMYCIN
     Dates: start: 20220518, end: 20220523
  8. BACLOFEN [Concomitant]
     Active Substance: BACLOFEN
  9. BELBUCA [Concomitant]
     Active Substance: BUPRENORPHINE HYDROCHLORIDE
  10. CLINDAMYCIN [Concomitant]
     Active Substance: CLINDAMYCIN
     Dates: start: 20221025
  11. DESVENLAFAXINE [Concomitant]
     Active Substance: DESVENLAFAXINE
  12. ACETAMINOPHEN\OXYCODONE HYDROCHLORIDE [Concomitant]
     Active Substance: ACETAMINOPHEN\OXYCODONE HYDROCHLORIDE
  13. PREDNISONE [Concomitant]
     Active Substance: PREDNISONE
     Dates: start: 20220302, end: 20220307
  14. ZOLPIDEM [Concomitant]
     Active Substance: ZOLPIDEM TARTRATE
  15. SHINGRIX [Concomitant]
     Active Substance: RECOMBINANT VARICELLA ZOSTER VIRUS (VZV) GLYCOPROTEIN E
     Dates: start: 20221015
  16. COVID Booster Pfizer [Concomitant]
     Dates: start: 20221015

REACTIONS (2)
  - Tooth infection [None]
  - Osteonecrosis of jaw [None]
